FAERS Safety Report 5246497-9 (Version None)
Quarter: 2007Q1

REPORT INFORMATION
  Report Type: 
  Country: None (occurrence: None)
  Receive Date: 20070222
  Receipt Date: 20070222
  Transmission Date: 20070707
  Serious: Yes (Hospitalization)
  Sender: FDA-Public Use
  Company Number: None

PATIENT
  Sex: Female
  Weight: 69.85 kg

DRUGS (2)
  1. CISPLATIN [Suspect]
     Dosage: 50 MG
  2. TAXOL [Suspect]
     Dosage: 244 MG

REACTIONS (15)
  - BACTERIAL INFECTION [None]
  - BLOOD CULTURE POSITIVE [None]
  - CHILLS [None]
  - DEHYDRATION [None]
  - DYSPNOEA [None]
  - FEMALE GENITAL TRACT FISTULA [None]
  - HAEMORRHAGE [None]
  - HYDRONEPHROSIS [None]
  - HYPOCALCAEMIA [None]
  - NAUSEA [None]
  - PANCYTOPENIA [None]
  - PELVIC PAIN [None]
  - PERIRENAL HAEMATOMA [None]
  - PYREXIA [None]
  - URINARY TRACT INFECTION [None]
